FAERS Safety Report 7465104-8 (Version None)
Quarter: 2011Q2

REPORT INFORMATION
  Report Type: 
  Country: None (occurrence: None)
  Receive Date: 20110428
  Receipt Date: 20110414
  Transmission Date: 20111010
  Serious: Yes (Hospitalization)
  Sender: FDA-Public Use
  Company Number: TCI2011A01085

PATIENT
  Age: 71 Year
  Sex: Female

DRUGS (7)
  1. CALBLOCK (AZELNIDIPINE) [Concomitant]
  2. ACTOS [Suspect]
     Indication: TYPE 2 DIABETES MELLITUS
     Dosage: 15 MG (15 MG, 1-2), PER ORAL
     Route: 048
     Dates: start: 20091219
  3. MERISLON (BETAHISTINE HYDROCHLORIDE) [Concomitant]
  4. CRESTOR [Concomitant]
  5. AMARYL [Suspect]
     Indication: TYPE 2 DIABETES MELLITUS
     Dosage: 1 MG (1 MG, 1 D), PER ORAL
     Route: 048
     Dates: start: 20091219
  6. BASEN (VOGLIBOSE) [Concomitant]
  7. OLMESARTAN MEDOXOMIL [Concomitant]

REACTIONS (5)
  - ANGINA PECTORIS [None]
  - HYPOGLYCAEMIA [None]
  - BODY TEMPERATURE DECREASED [None]
  - CORONARY ARTERY STENOSIS [None]
  - MYOCARDIAL ISCHAEMIA [None]
